FAERS Safety Report 7729817-2 (Version None)
Quarter: 2011Q3

REPORT INFORMATION
  Report Type: 
  Country: None (occurrence: None)
  Receive Date: 20110901
  Receipt Date: 20110901
  Transmission Date: 20111222
  Serious: Yes (Other)
  Sender: FDA-Public Use
  Company Number: None

PATIENT
  Sex: Female
  Weight: 61.2356 kg

DRUGS (1)
  1. RESTASIS [Suspect]
     Indication: DRY EYE
     Dosage: 1 DROP IN EYE 2X/DAY AM PM
     Dates: start: 20110724, end: 20110729

REACTIONS (5)
  - SINUSITIS [None]
  - LIP HAEMORRHAGE [None]
  - UPPER-AIRWAY COUGH SYNDROME [None]
  - GINGIVAL PAIN [None]
  - GINGIVAL SWELLING [None]
